FAERS Safety Report 7801132 (Version 7)
Quarter: 2013Q1

REPORT INFORMATION
  Report Type: Spontaneous
  Country: CA (occurrence: None)
  Receive Date: 20110119
  Receipt Date: 20121212
  Transmission Date: 20140127
  Serious: Yes (Hospitalization, Other)
  Sender: FDA-Public Use
  Company Number: CA-021479

PATIENT
  Age: 75 Year
  Sex: Male
  Weight: 56 kg

DRUGS (5)
  1. CHLORAMBUCIL [Suspect]
     Indication: CHRONIC LYMPHOCYTIC LEUKAEMIA
     Dosage: 10 MGM2 AT DAYS 1-7 EVERY 28 DAYS
     Route: 048
     Dates: start: 20101020, end: 20101221
  2. AZITHROMYCIN [Concomitant]
  3. CEFTRIAXONE [Concomitant]
  4. VANCOMYCIN [Concomitant]
  5. PARACETAMOL [Concomitant]

REACTIONS (4)
  - Haemolysis [None]
  - Pleural effusion [None]
  - Pneumothorax [None]
  - Pneumothorax [None]
